FAERS Safety Report 22298524 (Version 2)
Quarter: 2023Q2

REPORT INFORMATION
  Report Type: Spontaneous
  Country: GR (occurrence: GR)
  Receive Date: 20230509
  Receipt Date: 20230515
  Transmission Date: 20230721
  Serious: Yes (Death, Life-Threatening, Hospitalization, Other)
  Sender: FDA-Public Use
  Company Number: GR-MLMSERVICE-20230501-4262350-2

PATIENT
  Age: 50 Year
  Sex: Male

DRUGS (4)
  1. DOXYCYCLINE [Suspect]
     Active Substance: DOXYCYCLINE
     Indication: Brucellosis
     Dosage: 100 MG, BID
  2. RIFAMPIN [Suspect]
     Active Substance: RIFAMPIN
     Indication: Brucellosis
     Dosage: 600 MG, QD
  3. RIFAMPIN [Suspect]
     Active Substance: RIFAMPIN
     Dosage: DOSE REDUCED
  4. CIPROFLOXACIN [Suspect]
     Active Substance: CIPROFLOXACIN
     Indication: Brucellosis
     Dosage: 500 MG, BID

REACTIONS (4)
  - Hepatic failure [Fatal]
  - Hepatotoxicity [Fatal]
  - Jaundice [Fatal]
  - Hepatic encephalopathy [Fatal]
